FAERS Safety Report 24714824 (Version 1)
Quarter: 2024Q4

REPORT INFORMATION
  Report Type: Report from Study
  Country: AR (occurrence: AR)
  Receive Date: 20241210
  Receipt Date: 20241210
  Transmission Date: 20250115
  Serious: Yes (Hospitalization)
  Sender: ABBVIE
  Company Number: AR-ABBVIE-6036512

PATIENT
  Age: 54 Year
  Sex: Female

DRUGS (1)
  1. RINVOQ [Suspect]
     Active Substance: UPADACITINIB
     Indication: Rheumatoid arthritis
     Dosage: DOSAGE FORM: MODIFIED-RELEASE FILM-COATED TABLET?FORM STRENGTH: 15  MILLIGRAM
     Route: 048
     Dates: start: 20221028, end: 202411

REACTIONS (3)
  - Inflammation [Recovered/Resolved]
  - Scratch [Recovered/Resolved]
  - Cellulitis [Recovered/Resolved]

NARRATIVE: CASE EVENT DATE: 20241101
